FAERS Safety Report 6669639-7 (Version None)
Quarter: 2010Q2

REPORT INFORMATION
  Report Type: 
  Country: None (occurrence: None)
  Receive Date: 20100406
  Receipt Date: 20100325
  Transmission Date: 20101027
  Serious: Yes (Other)
  Sender: FDA-Public Use
  Company Number: US-PFIZER INC-2010034596

PATIENT
  Sex: Female
  Weight: 76 kg

DRUGS (16)
  1. LIPITOR [Suspect]
     Indication: BLOOD CHOLESTEROL INCREASED
     Dosage: 20 MG, 1X/DAY
     Route: 048
     Dates: start: 20000301
  2. LIPITOR [Suspect]
     Dosage: 40 MG, 1X/DAY
     Route: 048
     Dates: start: 20000301
  3. NORVASC [Concomitant]
     Indication: HYPERTENSION
     Dosage: UNK
  4. ACEBUTOLOL [Concomitant]
     Indication: HYPERTENSION
     Dosage: UNK
  5. GABAPENTIN [Concomitant]
  6. OMEPRAZOLE [Concomitant]
  7. FUROSEMIDE [Concomitant]
  8. LISINOPRIL [Concomitant]
  9. POTASSIUM [Concomitant]
  10. VENLAFAXINE [Concomitant]
  11. TOPIRAMATE [Concomitant]
  12. MECLIZINE [Concomitant]
  13. PREDNISONE [Concomitant]
  14. CALCIUM [Concomitant]
  15. MAGNESIUM OXIDE [Concomitant]
  16. OXYGEN [Concomitant]

REACTIONS (8)
  - BLOOD CHOLESTEROL INCREASED [None]
  - CHRONIC OBSTRUCTIVE PULMONARY DISEASE [None]
  - CONTUSION [None]
  - DRUG INEFFECTIVE [None]
  - MUSCULAR WEAKNESS [None]
  - MYALGIA [None]
  - PAIN [None]
  - PAIN IN EXTREMITY [None]
